FAERS Safety Report 8418321 (Version 3)
Quarter: 2012Q4

REPORT INFORMATION
  Report Type: 
  Country: US (occurrence: US)
  Receive Date: 20120221
  Receipt Date: 20120913
  Transmission Date: 20130627
  Serious: Yes (Hospitalization, Other)
  Sender: FDA-Public Use
  Company Number: US-BAYER-2012-016762

PATIENT
  Age: 35 Year
  Sex: Female
  Weight: 158.73 kg

DRUGS (26)
  1. YASMIN [Suspect]
     Indication: CONTRACEPTION
     Dosage: UNK
     Dates: start: 2004, end: 2006
  2. YASMIN [Suspect]
     Indication: MENSTRUAL CYCLE MANAGEMENT
  3. OCELLA [Suspect]
     Indication: CONTRACEPTION
     Dosage: UNK
     Dates: start: 201002, end: 20101115
  4. OCELLA [Suspect]
     Indication: MENSTRUAL CYCLE MANAGEMENT
  5. LISINOPRIL [Concomitant]
     Dosage: 10 mg, UNK
  6. HYDROCHLOROTHIAZIDE [Concomitant]
     Dosage: 25 mg, UNK
  7. SINGULAIR [Concomitant]
     Dosage: 10 mg, UNK
  8. DITROPAN [Concomitant]
     Dosage: 10 mg, UNK
  9. ONDANSETRON HYDROCHLORIDE [Concomitant]
     Dosage: UNK
     Dates: start: 20100714
  10. OMEPRAZOLE [Concomitant]
  11. OXYBUTYNIN [Concomitant]
     Dosage: UNK
     Dates: start: 20080810
  12. DEPO PROVERA [Concomitant]
     Dosage: UNK
     Dates: end: 20101119
  13. AMOXICILLIN W/CLAVULANATE POTASSIUM [Concomitant]
     Dosage: UNK
  14. CIPROFLOXACIN [Concomitant]
     Dosage: UNK
  15. CLINDAMYCIN [Concomitant]
     Dosage: UNK
  16. IBUPROFEN [Concomitant]
     Dosage: UNK
     Dates: start: 2000, end: 2011
  17. VITAMIN C [Concomitant]
     Dosage: UNK
     Dates: start: 2006
  18. KLOR-CON [Concomitant]
     Indication: HYPOKALAEMIA
     Dosage: UNK
     Dates: start: 201008
  19. VICODIN [Concomitant]
     Dosage: UNK
     Dates: start: 20101115
  20. TRIAMCINOLONE ACETONIDE [Concomitant]
     Dosage: UNK
     Route: 061
     Dates: start: 20101115
  21. GLUCOSAMINE [Concomitant]
     Dosage: UNK
     Dates: start: 20101116
  22. MONTELUKAST [Concomitant]
     Dosage: 10 mg, daily
     Dates: start: 20101116
  23. MULTIVITAMINS [Concomitant]
     Dosage: UNK
     Dates: start: 20101116
  24. ALBUTEROL [Concomitant]
     Dosage: UNK
     Dates: start: 20101116
  25. CITALOPRAM [Concomitant]
     Indication: MENTAL DISORDER
     Dosage: 20 mg, daily
     Route: 048
     Dates: start: 20101116
  26. ALPRAZOLAM [Concomitant]
     Dosage: UNK
     Dates: start: 20101116

REACTIONS (16)
  - Cholecystitis chronic [None]
  - Pulmonary embolism [None]
  - Deep vein thrombosis postoperative [None]
  - Hypertension [None]
  - Gallbladder enlargement [None]
  - Nausea [None]
  - Vomiting [None]
  - Diarrhoea [None]
  - Abdominal pain upper [None]
  - Chest pain [None]
  - Dyspnoea [None]
  - Anhedonia [None]
  - Tearfulness [None]
  - Feeling of despair [None]
  - Disturbance in attention [None]
  - Sleep disorder [None]
